FAERS Safety Report 4445974-8 (Version None)
Quarter: 2004Q3

REPORT INFORMATION
  Report Type: 
  Country: None (occurrence: None)
  Receive Date: 20040907
  Receipt Date: 20040826
  Transmission Date: 20050211
  Serious: Yes (Other)
  Sender: FDA-Public Use
  Company Number: 2004-08-1901

PATIENT
  Sex: Male

DRUGS (4)
  1. NASONEX [Suspect]
     Indication: SINUS CONGESTION
     Dosage: NASAL SPRAY
     Route: 045
     Dates: start: 20040429, end: 20040826
  2. LIPITOR [Concomitant]
  3. BETAPACE (SOTALO HCL) [Concomitant]
  4. PRILOSEC [Concomitant]

REACTIONS (4)
  - AGEUSIA [None]
  - ANOREXIA [None]
  - ANOSMIA [None]
  - WEIGHT DECREASED [None]
